FAERS Safety Report 6303715-3 (Version None)
Quarter: 2009Q3

REPORT INFORMATION
  Report Type: 
  Country: None (occurrence: None)
  Receive Date: 20090807
  Receipt Date: 20090807
  Transmission Date: 20100115
  Serious: No
  Sender: FDA-Public Use
  Company Number: None

PATIENT
  Age: 49 Year
  Sex: Male
  Weight: 76.2043 kg

DRUGS (4)
  1. ENALAPRIL MALEATE [Suspect]
     Indication: PROPHYLAXIS
     Dosage: 5MG DAILY UNK
     Route: 065
     Dates: start: 20090724, end: 20090803
  2. ENALAPRIL MALEATE [Suspect]
     Indication: PROTEIN TOTAL DECREASED
     Dosage: 5MG DAILY UNK
     Route: 065
     Dates: start: 20090724, end: 20090803
  3. ENALAPRIL MALEATE [Suspect]
     Indication: RENAL FAILURE
     Dosage: 5MG DAILY UNK
     Route: 065
     Dates: start: 20090724, end: 20090803
  4. METFORMIN HCL [Suspect]
     Indication: TYPE 2 DIABETES MELLITUS
     Dosage: 850 DAILY UNK
     Route: 065
     Dates: start: 20090724, end: 20090805

REACTIONS (2)
  - HYPOAESTHESIA [None]
  - PERIPHERAL VASCULAR DISORDER [None]
